FAERS Safety Report 8461599-1 (Version None)
Quarter: 2012Q2

REPORT INFORMATION
  Report Type: 
  Country: None (occurrence: None)
  Receive Date: 20120625
  Receipt Date: 20120620
  Transmission Date: 20120825
  Serious: Yes (Hospitalization)
  Sender: FDA-Public Use
  Company Number: PHEH2012US012344

PATIENT
  Sex: Male

DRUGS (1)
  1. TOBI [Suspect]
     Indication: CYSTIC FIBROSIS
     Dosage: 300 MG, BID
     Dates: start: 20120203, end: 20120403

REACTIONS (5)
  - VENA CAVA THROMBOSIS [None]
  - CONVULSION [None]
  - SWELLING FACE [None]
  - MALAISE [None]
  - PNEUMOTHORAX [None]
